FAERS Safety Report 13755720 (Version 1)
Quarter: 2017Q3

REPORT INFORMATION
  Report Type: Report from Study
  Country: US (occurrence: US)
  Receive Date: 20170714
  Receipt Date: 20170714
  Transmission Date: 20171127
  Serious: Yes (Death, Hospitalization, Other)
  Sender: FDA-Public Use
  Company Number: US-ROCHE-1936007

PATIENT
  Age: 75 Year
  Sex: Female
  Weight: 103 kg

DRUGS (1)
  1. TRASTUZUMAB EMTANSINE [Suspect]
     Active Substance: ADO-TRASTUZUMAB EMTANSINE
     Indication: NEOPLASM MALIGNANT
     Dosage: OVER 30-90 MINUTES ON DAY 1
     Route: 042
     Dates: start: 20170120, end: 20170303

REACTIONS (11)
  - Aspartate aminotransferase increased [Unknown]
  - Hypokalaemia [Unknown]
  - Fluid overload [Unknown]
  - Hyponatraemia [Unknown]
  - Cellulitis [Unknown]
  - Disease progression [Fatal]
  - Fatigue [Unknown]
  - Anaemia [Unknown]
  - Dyspnoea [Unknown]
  - Hypoalbuminaemia [Unknown]
  - Lymphocyte count decreased [Unknown]

NARRATIVE: CASE EVENT DATE: 20170323
